FAERS Safety Report 10731214 (Version 1)
Quarter: 2015Q1

REPORT INFORMATION
  Report Type: Spontaneous
  Country: US (occurrence: US)
  Receive Date: 20150122
  Receipt Date: 20150122
  Transmission Date: 20150721
  Serious: Yes (Other)
  Sender: FDA-Public Use
  Company Number: US-MYLANLABS-2015M1001136

PATIENT

DRUGS (2)
  1. CLONIDINE. [Suspect]
     Active Substance: CLONIDINE
     Indication: HYPERTENSION
     Dosage: 0.3MG
     Route: 048
  2. YOHIMBINE [Interacting]
     Active Substance: YOHIMBINE
     Indication: ERECTILE DYSFUNCTION
     Route: 065

REACTIONS (2)
  - Hypertensive crisis [Recovered/Resolved]
  - Drug interaction [Recovered/Resolved]
